FAERS Safety Report 25368352 (Version 1)
Quarter: 2025Q2

REPORT INFORMATION
  Report Type: Spontaneous
  Country: DE (occurrence: DE)
  Receive Date: 20250528
  Receipt Date: 20250528
  Transmission Date: 20250717
  Serious: Yes (Hospitalization)
  Sender: BAYER HEALTHCARE PHARMACEUTICALS INC.
  Company Number: None

PATIENT
  Age: 73 Year
  Sex: Male
  Weight: 120 kg

DRUGS (1)
  1. ULTRAVIST [Suspect]
     Active Substance: IOPROMIDE
     Route: 042

REACTIONS (3)
  - Cardiovascular disorder [Recovering/Resolving]
  - Blood pressure fluctuation [Unknown]
  - Nausea [Unknown]

NARRATIVE: CASE EVENT DATE: 20250512
